FAERS Safety Report 25982779 (Version 1)
Quarter: 2025Q4

REPORT INFORMATION
  Report Type: Spontaneous
  Country: EU (occurrence: EU)
  Receive Date: 20251031
  Receipt Date: 20251031
  Transmission Date: 20260118
  Serious: Yes (Death, Other)
  Sender: AUROBINDO
  Company Number: EU-EMA-DD-20240328-7482715-062428

PATIENT
  Age: 55 Year
  Sex: Male

DRUGS (9)
  1. MYCOPHENOLIC ACID [Suspect]
     Active Substance: MYCOPHENOLIC ACID
     Indication: Dermatomyositis
     Dosage: 3 GRAM, ONCE A DAY
     Route: 065
  2. MYCOPHENOLIC ACID [Suspect]
     Active Substance: MYCOPHENOLIC ACID
     Dosage: 1 GRAM, ONCE A DAY (1 GRAM, QD; REINTRODUCED WITH LOW-DOSE PREDNISONE)
     Route: 065
  3. HUMAN IMMUNOGLOBULIN G [Suspect]
     Active Substance: HUMAN IMMUNOGLOBULIN G
     Indication: Immunosuppression
     Dosage: 2 GRAM PER GRAM (2 GRAM PER GRAM; TREATED WITH BEGELOMAB;TWO OTHER CYCLES IN THE FOLLOWING 2 MONTHS;
     Route: 042
  4. HUMAN IMMUNOGLOBULIN G [Suspect]
     Active Substance: HUMAN IMMUNOGLOBULIN G
     Dosage: 400 MILLIGRAM/KILOGRAM (400 MG/KG)
     Route: 065
  5. METHYLPREDNISOLONE [Suspect]
     Active Substance: METHYLPREDNISOLONE
     Indication: Dermatomyositis
     Dosage: 0.7 MILLIGRAM/KILOGRAM, ONCE A DAY (0.7 MG/KG DAILY TO BE SLOWLY TAPERED)
     Route: 065
  6. PREDNISONE [Suspect]
     Active Substance: PREDNISONE
     Indication: Dermatomyositis
     Dosage: 10 MILLIGRAM (10 MG; LOW-DOSE TOGETHER WITH MYCOPHENOLATE MOFETIL)
     Route: 048
  7. RITUXIMAB [Suspect]
     Active Substance: RITUXIMAB
     Indication: Dermatomyositis
     Dosage: UNK (IN THE FOLLOWING 2 MONTHS, IVIG AND RTX WERE RECEIVED WHILE CONTINUING GLUCOCORTICOIDS)
     Route: 065
  8. TACROLIMUS [Suspect]
     Active Substance: TACROLIMUS
     Indication: Dermatomyositis
     Dosage: 1 GRAM
     Route: 065
  9. BEGELOMAB [Concomitant]
     Active Substance: BEGELOMAB
     Indication: Dermatomyositis
     Dosage: 4 MILLIGRAM/SQ. METER (4 MG/M2 DAILY FOR 5 CONSECUTIVE DAYS; NEW 5-DAY CYCLE AT THE DOSAGE OF 4 MG/M
     Route: 042

REACTIONS (11)
  - Respiratory failure [Fatal]
  - Pneumonia aspiration [Fatal]
  - Dehiscence [Unknown]
  - Ileal perforation [Unknown]
  - Acute hepatitis C [Unknown]
  - Enterococcal sepsis [Unknown]
  - Fungal peritonitis [Unknown]
  - Condition aggravated [Unknown]
  - Dermatomyositis [Unknown]
  - Off label use [Unknown]
  - Therapeutic product effect incomplete [Unknown]
